FAERS Safety Report 10430712 (Version 1)
Quarter: 2014Q3

REPORT INFORMATION
  Report Type: Spontaneous
  Country: US (occurrence: None)
  Receive Date: 20140903
  Receipt Date: 20140903
  Transmission Date: 20150326
  Serious: No
  Sender: FDA-Public Use
  Company Number: None

PATIENT
  Age: 67 Year
  Sex: Female

DRUGS (1)
  1. HUMIRA [Suspect]
     Active Substance: ADALIMUMAB
     Indication: ARTHROPATHY
     Route: 058
     Dates: start: 20140415, end: 20140422

REACTIONS (5)
  - Abscess [None]
  - Oedema [None]
  - Scar [None]
  - Skin ulcer [None]
  - Gastrointestinal disorder [None]

NARRATIVE: CASE EVENT DATE: 20140604
